FAERS Safety Report 5177629-9 (Version None)
Quarter: 2006Q4

REPORT INFORMATION
  Report Type: 
  Country: None (occurrence: None)
  Receive Date: 20061218
  Receipt Date: 20060724
  Transmission Date: 20070319
  Serious: No
  Sender: FDA-Public Use
  Company Number: US-AMGEN-KDL187543

PATIENT
  Sex: Male

DRUGS (5)
  1. ENBREL [Suspect]
     Indication: PSORIATIC ARTHROPATHY
     Route: 058
     Dates: start: 20060413
  2. ALLOPURINOL [Concomitant]
     Dates: start: 20050830
  3. MEDROL [Concomitant]
     Dates: start: 20060619
  4. INDOCIN [Concomitant]
     Dates: start: 20060619
  5. PREVACID [Concomitant]
     Dates: start: 20060920

REACTIONS (1)
  - INFECTED SEBACEOUS CYST [None]
